FAERS Safety Report 4896827-2 (Version None)
Quarter: 2006Q1

REPORT INFORMATION
  Report Type: 
  Country: None (occurrence: None)
  Receive Date: 20060126
  Receipt Date: 20060117
  Transmission Date: 20060701
  Serious: Yes (Death)
  Sender: FDA-Public Use
  Company Number: B0407359A

PATIENT
  Sex: Female

DRUGS (2)
  1. AMOXICILLIN TRIHYDRATE [Suspect]
  2. ETHINYLOESTRAD.+ LEVONORG. [Concomitant]

REACTIONS (1)
  - NEUTROPENIA [None]
